FAERS Safety Report 24848435 (Version 1)
Quarter: 2025Q1

REPORT INFORMATION
  Report Type: Report from Study
  Country: CA (occurrence: CA)
  Receive Date: 20250116
  Receipt Date: 20250116
  Transmission Date: 20250408
  Serious: Yes (Other)
  Sender: NOVARTIS
  Company Number: CA-002147023-NVSC2023CA133048

PATIENT
  Age: 35 Year
  Sex: Female

DRUGS (1)
  1. KESIMPTA [Suspect]
     Active Substance: OFATUMUMAB
     Indication: Relapsing-remitting multiple sclerosis
     Route: 058
     Dates: start: 20221022

REACTIONS (4)
  - Relapsing-remitting multiple sclerosis [Unknown]
  - Condition aggravated [Unknown]
  - Malaise [Unknown]
  - Weight increased [Unknown]
